FAERS Safety Report 7046733-2 (Version None)
Quarter: 2010Q4

REPORT INFORMATION
  Report Type: 
  Country: None (occurrence: None)
  Receive Date: 20101015
  Receipt Date: 20101005
  Transmission Date: 20110411
  Serious: Yes (Death)
  Sender: FDA-Public Use
  Company Number: US-JNJFOC-20101002983

PATIENT
  Age: 46 Year
  Sex: Male

DRUGS (5)
  1. DARUNAVIR [Suspect]
     Indication: HIV INFECTION
     Route: 065
  2. RITONAVIR [Suspect]
     Indication: HIV INFECTION
     Route: 065
  3. RITONAVIR [Suspect]
     Route: 065
  4. EMTRICITABINE W/TENOFOVIR [Suspect]
     Indication: HIV INFECTION
     Route: 065
  5. EMTRICITABINE W/TENOFOVIR [Suspect]
     Route: 065

REACTIONS (1)
  - ACUTE HEPATIC FAILURE [None]
